FAERS Safety Report 25869986 (Version 1)
Quarter: 2025Q4

REPORT INFORMATION
  Report Type: Spontaneous
  Country: US (occurrence: US)
  Receive Date: 20251001
  Receipt Date: 20251001
  Transmission Date: 20260118
  Serious: Yes (Other)
  Sender: SLATE RUN
  Company Number: US-SLATERUN-2025SRSPO00199

PATIENT
  Age: 63 Year
  Sex: Male

DRUGS (2)
  1. TROSPIUM CHLORIDE [Suspect]
     Active Substance: TROSPIUM CHLORIDE
     Indication: Urinary retention
     Route: 065
     Dates: start: 20250908, end: 20250909
  2. TROSPIUM CHLORIDE [Suspect]
     Active Substance: TROSPIUM CHLORIDE
     Indication: Urinary retention

REACTIONS (3)
  - Anuria [Recovered/Resolved]
  - Dry mouth [Recovered/Resolved]
  - Product use in unapproved indication [Unknown]

NARRATIVE: CASE EVENT DATE: 20250910
